FAERS Safety Report 6698169 (Version 7)
Quarter: 2014Q3

REPORT INFORMATION
  Report Type: Spontaneous
  Country: ES (occurrence: None)
  Receive Date: 20080701
  Receipt Date: 20140926
  Transmission Date: 20150326
  Serious: Yes (Hospitalization)
  Sender: FDA-Public Use
  Company Number: 2008001422

PATIENT
  Age: 50 Year
  Sex: Female

DRUGS (6)
  1. CISPLATIN. [Suspect]
     Active Substance: CISPLATIN
     Indication: SQUAMOUS CELL CARCINOMA OF HEAD AND NECK
     Dosage: 30 MG/M2, WEEKLY, IV NOS
     Route: 042
     Dates: start: 20080428, end: 20080519
  2. ERLOTINIB HYDROCHLORIDE [Suspect]
     Active Substance: ERLOTINIB HYDROCHLORIDE
     Indication: SQUAMOUS CELL CARCINOMA OF HEAD AND NECK
     Dosage: 150 MG, UID/QD, ORAL
     Route: 048
     Dates: start: 20080428, end: 20080525
  3. FENTANYL (FENTANYL) [Concomitant]
     Active Substance: FENTANYL
  4. METHYLPREDNISOLONE [Concomitant]
     Active Substance: METHYLPREDNISOLONE
  5. CITALOPRAM HYDROBROMIDE. [Concomitant]
     Active Substance: CITALOPRAM HYDROBROMIDE
  6. DICLOFENAC SODIUM. [Concomitant]
     Active Substance: DICLOFENAC SODIUM

REACTIONS (7)
  - Off label use [None]
  - Dehydration [None]
  - Food intolerance [None]
  - Mucosal inflammation [None]
  - Dermatitis [None]
  - Vomiting [None]
  - Dysphagia [None]

NARRATIVE: CASE EVENT DATE: 20080523
